FAERS Safety Report 14544073 (Version 13)
Quarter: 2019Q1

REPORT INFORMATION
  Report Type: Spontaneous
  Country: CA (occurrence: CA)
  Receive Date: 20180216
  Receipt Date: 20190328
  Transmission Date: 20190417
  Serious: Yes (Other)
  Sender: FDA-Public Use
  Company Number: CA-PFIZER INC-2017406297

PATIENT
  Age: 65 Year
  Sex: Male
  Weight: 79.36 kg

DRUGS (20)
  1. TYLENOL ARTHRITIS PAIN [Concomitant]
     Active Substance: ACETAMINOPHEN
     Indication: RHEUMATOID ARTHRITIS
     Dosage: 1-2 DF, 2X/DAY AS NEEDED
     Dates: start: 20181002
  2. XELJANZ [Suspect]
     Active Substance: TOFACITINIB CITRATE
     Dosage: 5 MG, BID
     Route: 048
     Dates: start: 20180109, end: 20181215
  3. CELEBREX [Suspect]
     Active Substance: CELECOXIB
     Dosage: 200 MG, 2X/DAY
     Dates: start: 20181002
  4. CELEBREX [Suspect]
     Active Substance: CELECOXIB
     Dosage: 100 MG, DAILY
     Dates: start: 20180109
  5. ORENCIA [Concomitant]
     Active Substance: ABATACEPT
     Indication: RHEUMATOID ARTHRITIS
     Dosage: UNK
     Dates: start: 20190102
  6. MAGNESIUM [Concomitant]
     Active Substance: MAGNESIUM
     Dosage: 1 DF, DAILY
     Dates: start: 20181207
  7. CENTRUM MEN 50+ [Concomitant]
     Indication: VITAMIN SUPPLEMENTATION
     Dosage: 1 DF, DAILY AS NEEDED
     Dates: start: 20171012
  8. XELJANZ [Suspect]
     Active Substance: TOFACITINIB CITRATE
     Dosage: UNK
  9. CORTISONE [Concomitant]
     Active Substance: CORTISONE\HYDROCORTISONE
     Indication: RHEUMATOID ARTHRITIS
     Dosage: UNK
  10. DEPO-MEDROL [Concomitant]
     Active Substance: METHYLPREDNISOLONE ACETATE
     Indication: RHEUMATOID ARTHRITIS
     Dosage: 120 MG, UNK
     Dates: start: 20181002
  11. XELJANZ [Suspect]
     Active Substance: TOFACITINIB CITRATE
     Dosage: 5 MG, BID
     Route: 048
     Dates: start: 2017, end: 201801
  12. ENBREL [Suspect]
     Active Substance: ETANERCEPT
     Indication: RHEUMATOID ARTHRITIS
     Dosage: UNK UNK, QWK
  13. ASA [Concomitant]
     Active Substance: ASPIRIN
     Indication: CARDIOVASCULAR DISORDER
     Dosage: 81 MG, DAILY
     Dates: start: 20171012
  14. VITAMIN D [Concomitant]
     Active Substance: CHOLECALCIFEROL
     Indication: VITAMIN SUPPLEMENTATION
     Dosage: 2000 IU, DAILY
     Dates: start: 20171012
  15. XELJANZ [Suspect]
     Active Substance: TOFACITINIB CITRATE
     Indication: RHEUMATOID ARTHRITIS
     Dosage: 5 MG, QD
     Route: 048
     Dates: start: 20171012, end: 2017
  16. L-THYROXINE [LEVOTHYROXINE] [Concomitant]
     Indication: HYPOTHYROIDISM
     Dosage: 17.5 UG, DAILY
     Dates: start: 20171012
  17. CELEBREX [Suspect]
     Active Substance: CELECOXIB
     Indication: RHEUMATOID ARTHRITIS
     Dosage: 200 MG, AS NEEDED
     Dates: start: 20171012
  18. DESOXIMETASONE. [Concomitant]
     Active Substance: DESOXIMETASONE
     Indication: RHEUMATOID ARTHRITIS
     Dosage: UNK
     Route: 065
  19. LOSEC [Concomitant]
     Active Substance: OMEPRAZOLE
     Indication: DYSPEPSIA
     Dosage: 20 MG, AS NEEDED
     Dates: start: 20171012
  20. ROSUVASTATIN. [Concomitant]
     Active Substance: ROSUVASTATIN
     Indication: CARDIOVASCULAR DISORDER
     Dosage: 10 MG, DAILY
     Dates: start: 20181002

REACTIONS (7)
  - Osteoarthritis [Not Recovered/Not Resolved]
  - Drug ineffective [Not Recovered/Not Resolved]
  - Bronchitis [Recovered/Resolved]
  - Lower respiratory tract infection [Recovered/Resolved]
  - Product dose omission [Unknown]
  - Decreased activity [Not Recovered/Not Resolved]
  - Sensitivity to weather change [Not Recovered/Not Resolved]

NARRATIVE: CASE EVENT DATE: 201801
